FAERS Safety Report 10948362 (Version 1)
Quarter: 2015Q1

REPORT INFORMATION
  Report Type: Spontaneous
  Country: US (occurrence: None)
  Receive Date: 20150225
  Receipt Date: 20150225
  Transmission Date: 20150721
  Serious: Yes (Hospitalization)
  Sender: FDA-Public Use
  Company Number: 2013-US-002975

PATIENT
  Age: 62 Year
  Sex: Male
  Weight: 77.6 kg

DRUGS (9)
  1. PRIALT [Suspect]
     Active Substance: ZICONOTIDE ACETATE
     Indication: PAIN
     Route: 037
     Dates: start: 20130813
  2. PRIALT [Suspect]
     Active Substance: ZICONOTIDE ACETATE
     Indication: NEUROPATHY PERIPHERAL
     Route: 037
     Dates: start: 20130813
  3. DILAUDID [Concomitant]
     Active Substance: HYDROMORPHONE HYDROCHLORIDE
  4. LEVITRA (VARDENAFIL HYDROCHLORIDE) [Concomitant]
  5. WELLBUTRIN [Concomitant]
     Active Substance: BUPROPION HYDROCHLORIDE
  6. XANAX [Concomitant]
     Active Substance: ALPRAZOLAM
  7. PRIALT [Suspect]
     Active Substance: ZICONOTIDE ACETATE
     Indication: SPINAL PAIN
     Route: 037
     Dates: start: 20130813
  8. SEROQUEL [Concomitant]
     Active Substance: QUETIAPINE FUMARATE
  9. PRIALT [Suspect]
     Active Substance: ZICONOTIDE ACETATE
     Indication: PAIN IN EXTREMITY
     Route: 037
     Dates: start: 20130813

REACTIONS (6)
  - Hallucination [None]
  - Drug hypersensitivity [None]
  - Thinking abnormal [None]
  - Device issue [None]
  - Drug withdrawal syndrome [None]
  - Dysarthria [None]

NARRATIVE: CASE EVENT DATE: 201310
